FAERS Safety Report 22156361 (Version 1)
Quarter: 2023Q1

REPORT INFORMATION
  Report Type: Spontaneous
  Country: US (occurrence: None)
  Receive Date: 20230330
  Receipt Date: 20230330
  Transmission Date: 20230418
  Serious: Yes (Life-Threatening)
  Sender: FDA-Public Use
  Company Number: None

PATIENT
  Age: 60 Year
  Sex: Female
  Weight: 123.5 kg

DRUGS (11)
  1. CEFTRIAXONE [Suspect]
     Active Substance: CEFTRIAXONE
     Indication: Sepsis
     Dosage: OTHER FREQUENCY : ONCE;?
     Route: 040
     Dates: start: 20230322, end: 20230322
  2. CEFTRIAXONE [Suspect]
     Active Substance: CEFTRIAXONE
     Indication: Cellulitis
  3. Acetaminophen 325mg tablet (650mg) [Concomitant]
     Dates: start: 20230322
  4. Clonidine 0.1mg tablet (0.2mg) [Concomitant]
     Dates: start: 20230322
  5. Piperacillin/tazobactam 4.5g (given ~3hrs prior) [Concomitant]
     Dates: start: 20230322
  6. Potassium chloride ER 20mEq tab (40mEq) [Concomitant]
     Dates: start: 20230322
  7. amlodipine 10mg (home med documented) [Concomitant]
  8. Atorvastatin 10mg (home med documented) [Concomitant]
  9. Carvedilol 6.25mg (home med documented) [Concomitant]
  10. Hydrochlorothiazide 25mg (home med documented) [Concomitant]
  11. losartan 100mg (home med documented) [Concomitant]

REACTIONS (7)
  - Unresponsive to stimuli [None]
  - Agonal respiration [None]
  - Pulse abnormal [None]
  - Rash erythematous [None]
  - Rash [None]
  - Rash [None]
  - Pulse absent [None]

NARRATIVE: CASE EVENT DATE: 20230322
